FAERS Safety Report 11522962 (Version 1)
Quarter: 2015Q3

REPORT INFORMATION
  Report Type: Report from Study
  Country: IN (occurrence: IN)
  Receive Date: 20150918
  Receipt Date: 20150918
  Transmission Date: 20151125
  Serious: Yes (Other)
  Sender: FDA-Public Use
  Company Number: IN-BAXTER-2014BAX054756

PATIENT
  Sex: Female

DRUGS (1)
  1. LOW CALCIUM PERITONEAL DIALYSIS SOLUTION WITH 1.5% DEXTROSE [Suspect]
     Active Substance: CALCIUM CHLORIDE\DEXTROSE MONOHYDRATE\MAGNESIUM CHLORIDE\SODIUM CHLORIDE\SODIUM LACTATE
     Indication: PERITONEAL DIALYSIS
     Dosage: 3 BAGS (2 LITERS EACH)
     Route: 033

REACTIONS (8)
  - Hypoaesthesia [Unknown]
  - Catheter site mass [Unknown]
  - Nephrocalcinosis [Unknown]
  - Blood phosphorus increased [Unknown]
  - Blood calcium increased [Unknown]
  - Burning sensation [Unknown]
  - Catheter site haemorrhage [Unknown]
  - Musculoskeletal stiffness [Unknown]
